FAERS Safety Report 19154645 (Version 1)
Quarter: 2021Q2

REPORT INFORMATION
  Report Type: Spontaneous
  Country: TR (occurrence: TR)
  Receive Date: 20210419
  Receipt Date: 20210419
  Transmission Date: 20210717
  Serious: Yes (Life-Threatening, Hospitalization, Other)
  Sender: FDA-Public Use
  Company Number: TR-TEVA-2021-TR-1901761

PATIENT
  Age: 35 Year
  Sex: Male
  Weight: 74 kg

DRUGS (2)
  1. ZINXX [Suspect]
     Active Substance: ZINC SULFATE
     Indication: ACNE
     Dosage: UNKNOWN FORM STRENGTH
     Route: 048
     Dates: start: 20210322
  2. TETRADOX [DOXYCYCLINE] [Suspect]
     Active Substance: DOXYCYCLINE
     Indication: ACNE
     Dosage: 100 MILLIGRAM DAILY;
     Route: 048
     Dates: start: 20210322

REACTIONS (3)
  - Tongue haemorrhage [Not Recovered/Not Resolved]
  - Syncope [Recovered/Resolved]
  - Loss of consciousness [Recovered/Resolved]

NARRATIVE: CASE EVENT DATE: 20210322
